FAERS Safety Report 8502255-0 (Version None)
Quarter: 2012Q2

REPORT INFORMATION
  Report Type: 
  Country: None (occurrence: None)
  Receive Date: 20120405
  Receipt Date: 20100914
  Transmission Date: 20120825
  Serious: Yes (Other)
  Sender: FDA-Public Use
  Company Number: PHHY2010US61177

PATIENT
  Age: 81 Year
  Sex: Female

DRUGS (9)
  1. LISINOPRIL [Concomitant]
  2. LEVOTHYROXINE SODIUM [Concomitant]
  3. ACTOS (PIOGLITAZONE, PIOGLITAZONE HYDROCHLORIDE) [Concomitant]
  4. METOPROLOL TARTRATE [Concomitant]
  5. ASPIRIN [Concomitant]
  6. RECLAST [Suspect]
     Dosage: INFUSION
  7. VITAMIN D [Concomitant]
  8. THYROID TAB [Concomitant]
  9. CITRACAL (CALCIUM CITRATE) [Concomitant]

REACTIONS (6)
  - RASH ERYTHEMATOUS [None]
  - RASH GENERALISED [None]
  - SCRATCH [None]
  - RASH PRURITIC [None]
  - MALAISE [None]
  - SKIN HAEMORRHAGE [None]
